FAERS Safety Report 15689441 (Version 3)
Quarter: 2019Q1

REPORT INFORMATION
  Report Type: Spontaneous
  Country: US (occurrence: US)
  Receive Date: 20181205
  Receipt Date: 20190104
  Transmission Date: 20190417
  Serious: Yes (Hospitalization, Other)
  Sender: FDA-Public Use
  Company Number: US-BAYER-2018-219961

PATIENT
  Age: 66 Year
  Sex: Female

DRUGS (17)
  1. ADEMPAS [Suspect]
     Active Substance: RIOCIGUAT
     Indication: PULMONARY ARTERIAL HYPERTENSION
     Dosage: 1 MG, TID
     Dates: start: 20180808
  2. ADEMPAS [Suspect]
     Active Substance: RIOCIGUAT
     Indication: PULMONARY ARTERIAL HYPERTENSION
     Dosage: 2.5 MG, TID
     Dates: start: 20180920, end: 20181126
  3. ADEMPAS [Suspect]
     Active Substance: RIOCIGUAT
     Indication: PULMONARY ARTERIAL HYPERTENSION
     Dosage: 1 MG, TID
     Dates: start: 20180516
  4. ADEMPAS [Suspect]
     Active Substance: RIOCIGUAT
     Indication: PULMONARY ARTERIAL HYPERTENSION
     Dosage: 0.5 MG, TID
     Dates: start: 20180523
  5. ADEMPAS [Suspect]
     Active Substance: RIOCIGUAT
     Indication: PULMONARY ARTERIAL HYPERTENSION
     Dosage: UNK
     Dates: start: 201805
  6. ADEMPAS [Suspect]
     Active Substance: RIOCIGUAT
     Indication: PULMONARY ARTERIAL HYPERTENSION
     Dosage: 1.5 MG, TID
     Dates: start: 20180823
  7. REMODULIN [Concomitant]
     Active Substance: TREPROSTINIL
  8. LETAIRIS [Concomitant]
     Active Substance: AMBRISENTAN
     Dosage: 5 MG
     Dates: start: 20180420
  9. ADCIRCA [Concomitant]
     Active Substance: TADALAFIL
  10. ORENITRAM [Concomitant]
     Active Substance: TREPROSTINIL
     Indication: PULMONARY ARTERIAL HYPERTENSION
     Dosage: 5 MG, TID
     Dates: start: 20181129
  11. ASA [Concomitant]
     Active Substance: ASPIRIN
  12. VITAMIN D [Concomitant]
     Active Substance: CHOLECALCIFEROL
  13. ADEMPAS [Suspect]
     Active Substance: RIOCIGUAT
     Indication: PULMONARY ARTERIAL HYPERTENSION
     Dosage: 2 MG, TID
     Dates: start: 20180905
  14. FOLAVIT [Concomitant]
     Active Substance: FOLIC ACID
     Dosage: 1 MG
  15. ADEMPAS [Suspect]
     Active Substance: RIOCIGUAT
     Indication: PULMONARY ARTERIAL HYPERTENSION
     Dosage: 2.5 MG, TID
     Route: 048
     Dates: start: 2018, end: 201811
  16. LETAIRIS [Concomitant]
     Active Substance: AMBRISENTAN
     Dosage: 10 MG, QD
     Dates: start: 20180611
  17. COZAAR [Concomitant]
     Active Substance: LOSARTAN POTASSIUM
     Dosage: 100 MG, QD
     Dates: end: 20180517

REACTIONS (11)
  - Pulmonary hypertension [None]
  - Intraocular pressure increased [None]
  - Asthenia [Recovering/Resolving]
  - Blood pressure systolic decreased [None]
  - Blood pressure decreased [None]
  - Dyspnoea [None]
  - Fatigue [Recovering/Resolving]
  - Dizziness [None]
  - Blood pressure systolic decreased [None]
  - Therapy change [None]
  - Nausea [Recovering/Resolving]

NARRATIVE: CASE EVENT DATE: 2018
